FAERS Safety Report 12474981 (Version 1)
Quarter: 2016Q2

REPORT INFORMATION
  Report Type: Spontaneous
  Country: IT (occurrence: IT)
  Receive Date: 20160617
  Receipt Date: 20160617
  Transmission Date: 20160815
  Serious: Yes (Other)
  Sender: FDA-Public Use
  Company Number: IT-ACCORD-041495

PATIENT
  Age: 63 Year
  Sex: Female
  Weight: 70 kg

DRUGS (4)
  1. MIRTAZAPINE. [Concomitant]
     Active Substance: MIRTAZAPINE
     Indication: DEPRESSION
     Route: 048
     Dates: start: 20131104, end: 20140110
  2. ETOPOSIDE. [Suspect]
     Active Substance: ETOPOSIDE
     Indication: OVARIAN CANCER
     Route: 048
     Dates: start: 20131104, end: 20140110
  3. TAVOR (LORAZEPAM) [Concomitant]
     Active Substance: LORAZEPAM
     Indication: ANXIETY DISORDER
     Dosage: STRENGTH: 1 MG
     Route: 048
     Dates: start: 20131104, end: 20140110
  4. ESCITALOPRAM/ESCITALOPRAM OXALATE [Concomitant]
     Route: 048
     Dates: start: 20131104, end: 20140110

REACTIONS (4)
  - Nausea [Recovered/Resolved]
  - Fatigue [Recovered/Resolved]
  - Off label use [Unknown]
  - Transaminases increased [Recovered/Resolved]

NARRATIVE: CASE EVENT DATE: 20140110
